FAERS Safety Report 6369987-4 (Version None)
Quarter: 2009Q3

REPORT INFORMATION
  Report Type: 
  Country: None (occurrence: None)
  Receive Date: 20090923
  Receipt Date: 20070627
  Transmission Date: 20100115
  Serious: Yes (Other)
  Sender: FDA-Public Use
  Company Number: US-ASTRAZENECA-2006UW06099

PATIENT
  Age: 16009 Day
  Sex: Female
  Weight: 88.9 kg

DRUGS (11)
  1. SEROQUEL [Suspect]
     Dosage: 25 MG - 300 MG
     Route: 048
     Dates: start: 20020101
  2. SEROQUEL [Suspect]
     Dosage: 25-1200 MG
     Route: 048
     Dates: start: 20040406
  3. COCAINE [Concomitant]
  4. CITALOPRAM HYDROBROMIDE [Concomitant]
     Dosage: 20-40 MG
     Route: 048
  5. ELAVIL [Concomitant]
     Dosage: 75-200 MG
     Route: 048
  6. HYDROCHLOROTHIAZIDE [Concomitant]
     Route: 048
  7. TRAMADOL HCL [Concomitant]
     Route: 048
  8. ETODOLAC [Concomitant]
     Route: 048
  9. FLEXERIL [Concomitant]
     Route: 048
  10. HYDROCODONE BITARTRATE AND ACETAMINOPHEN [Concomitant]
     Dosage: 5-500 MG TO 7.5-500 MG
     Route: 048
  11. PROPO-N [Concomitant]
     Dosage: 100-600 MG
     Route: 048

REACTIONS (3)
  - HYPOGLYCAEMIA [None]
  - KETOACIDOSIS [None]
  - TYPE 2 DIABETES MELLITUS [None]
